FAERS Safety Report 17046144 (Version 5)
Quarter: 2019Q4

REPORT INFORMATION
  Report Type: Report from Study
  Country: None (occurrence: IL)
  Receive Date: 20191119
  Receipt Date: 20191210
  Transmission Date: 20200122
  Serious: Yes (Hospitalization, Other)
  Sender: FDA-Public Use
  Company Number: IL-ABBVIE-19K-082-3000534-00

PATIENT
  Sex: Female

DRUGS (3)
  1. DUODOPA [Suspect]
     Active Substance: CARBIDOPA\LEVODOPA
     Dosage: CURRENT MORNING 3ML CONTINUOUS RATE- 2.5ML/H?CURRENT NIGHT 1.5ML?CURRENT EXTRA 0.8ML
     Route: 050
  2. DUODOPA [Suspect]
     Active Substance: CARBIDOPA\LEVODOPA
     Indication: PARKINSON^S DISEASE
     Route: 050
     Dates: start: 20180207
  3. DUODOPA [Suspect]
     Active Substance: CARBIDOPA\LEVODOPA
     Dosage: CURRENT: MORNING, 3 ML, CONTINUOUS RATE 2.5 ML/HOUR, ED 0.8 ML
     Route: 050

REACTIONS (5)
  - Altered state of consciousness [Recovering/Resolving]
  - Abdominal pain [Unknown]
  - Blood sodium abnormal [Unknown]
  - Constipation [Unknown]
  - Flatulence [Unknown]
